FAERS Safety Report 8786567 (Version 2)
Quarter: 2012Q4

REPORT INFORMATION
  Report Type: 
  Country: IT (occurrence: IT)
  Receive Date: 20120914
  Receipt Date: 20121009
  Transmission Date: 20130627
  Serious: Yes (Hospitalization)
  Sender: FDA-Public Use
  Company Number: PHHY2012IT078776

PATIENT
  Age: 64 Year
  Sex: Female

DRUGS (3)
  1. CARBAMAZEPINE [Suspect]
     Dosage: 900 mg, UNK
  2. CEFIXIME [Interacting]
     Indication: RESPIRATORY TRACT INFECTION
  3. LEVETIRACETAM [Concomitant]
     Dosage: 3000 mg, UNK

REACTIONS (7)
  - Status epilepticus [Recovered/Resolved]
  - Disorientation [Recovered/Resolved]
  - Abnormal behaviour [Recovered/Resolved]
  - Confusional state [Recovered/Resolved]
  - Electroencephalogram abnormal [Recovered/Resolved]
  - Azotaemia [Recovered/Resolved]
  - Drug interaction [Unknown]
